FAERS Safety Report 25848257 (Version 1)
Quarter: 2025Q3

REPORT INFORMATION
  Report Type: Spontaneous
  Country: US (occurrence: US)
  Receive Date: 20250925
  Receipt Date: 20250925
  Transmission Date: 20251020
  Serious: No
  Sender: SANOFI AVENTIS
  Company Number: US-SA-2025SA286403

PATIENT
  Sex: Female
  Weight: 74.84 kg

DRUGS (8)
  1. DUPIXENT [Suspect]
     Active Substance: DUPILUMAB
     Indication: Dermatitis
     Dosage: 1DF; QOW
     Route: 058
  2. DUPIXENT [Suspect]
     Active Substance: DUPILUMAB
     Indication: Dermatitis atopic
  3. OXCARBAZEPINE [Concomitant]
     Active Substance: OXCARBAZEPINE
  4. EPIDIOLEX [Concomitant]
     Active Substance: CANNABIDIOL
  5. CITALOPRAM HYDROBROMIDE [Concomitant]
     Active Substance: CITALOPRAM HYDROBROMIDE
  6. SUMATRIPTAN [Concomitant]
     Active Substance: SUMATRIPTAN
  7. BRIVIACT [Concomitant]
     Active Substance: BRIVARACETAM
  8. CLOBAZAM [Concomitant]
     Active Substance: CLOBAZAM

REACTIONS (4)
  - Dry skin [Unknown]
  - Pruritus [Unknown]
  - Injection site pain [Unknown]
  - Product use in unapproved indication [Unknown]
